FAERS Safety Report 15675574 (Version 2)
Quarter: 2019Q1

REPORT INFORMATION
  Report Type: Spontaneous
  Country: IT (occurrence: IT)
  Receive Date: 20181130
  Receipt Date: 20190110
  Transmission Date: 20190417
  Serious: Yes (Death, Hospitalization)
  Sender: FDA-Public Use
  Company Number: IT-ORPHAN EUROPE-2059455

PATIENT
  Age: 17 Year
  Sex: Male
  Weight: 64 kg

DRUGS (4)
  1. FLAGYL [Concomitant]
     Active Substance: METRONIDAZOLE\METRONIDAZOLE HYDROCHLORIDE
  2. SODIUM BUTYRATE [Concomitant]
  3. CARBAGLU [Suspect]
     Active Substance: CARGLUMIC ACID
     Indication: PRODUCT USED FOR UNKNOWN INDICATION
  4. BIOARGININA [Concomitant]

REACTIONS (3)
  - Metabolic acidosis [Fatal]
  - Sepsis [Fatal]
  - Hyperlactacidaemia [Fatal]

NARRATIVE: CASE EVENT DATE: 20181009
